FAERS Safety Report 8024400-6 (Version None)
Quarter: 2012Q1

REPORT INFORMATION
  Report Type: 
  Country: None (occurrence: None)
  Receive Date: 20120105
  Receipt Date: 20120105
  Transmission Date: 20120608
  Serious: Yes (Other)
  Sender: FDA-Public Use
  Company Number: None

PATIENT
  Age: 30 Year
  Sex: Female
  Weight: 68.038 kg

DRUGS (2)
  1. CREST PRO-HEALTH COMPLETE [Concomitant]
     Indication: DENTAL DISORDER PROPHYLAXIS
     Dosage: 1/2 RECOMMENDATION 1 TEASPOON
     Route: 004
  2. COLGATE TOTAL [Suspect]
     Indication: DENTAL DISORDER PROPHYLAXIS
     Dosage: RECOMMENDED- PEA SIZE DROP
     Route: 004
     Dates: start: 20111222, end: 20111231

REACTIONS (10)
  - PARAESTHESIA [None]
  - IMPAIRED WORK ABILITY [None]
  - TONSILLAR HYPERTROPHY [None]
  - GINGIVAL SWELLING [None]
  - SWOLLEN TONGUE [None]
  - GLOSSODYNIA [None]
  - TONGUE DISCOLOURATION [None]
  - HYPOAESTHESIA ORAL [None]
  - EATING DISORDER [None]
  - PHARYNGEAL OEDEMA [None]
